FAERS Safety Report 23154857 (Version 1)
Quarter: 2023Q4

REPORT INFORMATION
  Report Type: Spontaneous
  Country: CA (occurrence: CA)
  Receive Date: 20231107
  Receipt Date: 20231107
  Transmission Date: 20240110
  Serious: Yes (Death, Hospitalization, Other)
  Sender: FDA-Public Use
  Company Number: CA-TEVA-2023-CA-2941455

PATIENT
  Age: 75 Year
  Sex: Female

DRUGS (8)
  1. ONDANSETRON [Suspect]
     Active Substance: ONDANSETRON
     Indication: Prophylaxis of nausea and vomiting
     Route: 048
  2. ONDANSETRON [Suspect]
     Active Substance: ONDANSETRON
     Indication: Prophylaxis against diarrhoea
     Route: 065
  3. AFINITOR [Suspect]
     Active Substance: EVEROLIMUS
     Indication: Product used for unknown indication
     Route: 065
  4. AFINITOR [Suspect]
     Active Substance: EVEROLIMUS
     Dosage: 5 MILLIGRAM DAILY;
     Route: 048
  5. MORPHINE [Suspect]
     Active Substance: MORPHINE
     Indication: Product used for unknown indication
     Route: 065
  6. SANDOSTATIN [Suspect]
     Active Substance: OCTREOTIDE ACETATE
     Indication: Carcinoid tumour
     Route: 030
  7. SANDOSTATIN [Suspect]
     Active Substance: OCTREOTIDE ACETATE
     Route: 030
  8. SANDOSTATIN [Suspect]
     Active Substance: OCTREOTIDE ACETATE
     Route: 030

REACTIONS (36)
  - 5-hydroxyindolacetic acid in urine [Fatal]
  - Abdominal pain [Fatal]
  - Asthenia [Fatal]
  - Back pain [Fatal]
  - Breast cancer stage II [Fatal]
  - Breast pain [Fatal]
  - Chest pain [Fatal]
  - Diarrhoea [Fatal]
  - Dizziness [Fatal]
  - Dysstasia [Fatal]
  - Emphysema [Fatal]
  - Feeling abnormal [Fatal]
  - Flatulence [Fatal]
  - Gait disturbance [Fatal]
  - Headache [Fatal]
  - Hypertension [Fatal]
  - Influenza like illness [Fatal]
  - Injection site pain [Fatal]
  - Intestinal obstruction [Fatal]
  - Joint injury [Fatal]
  - Malaise [Fatal]
  - Malignant neoplasm progression [Fatal]
  - Metastases to liver [Fatal]
  - Musculoskeletal pain [Fatal]
  - Nausea [Fatal]
  - Nervousness [Fatal]
  - Oedema [Fatal]
  - Osteoarthritis [Fatal]
  - Pain [Fatal]
  - Pancreatic neuroendocrine tumour metastatic [Fatal]
  - Second primary malignancy [Fatal]
  - Terminal state [Fatal]
  - Vomiting [Fatal]
  - Blood pressure systolic increased [Fatal]
  - Product use in unapproved indication [Fatal]
  - Death [Fatal]
